FAERS Safety Report 15750737 (Version 2)
Quarter: 2019Q1

REPORT INFORMATION
  Report Type: Spontaneous
  Country: JP (occurrence: JP)
  Receive Date: 20181221
  Receipt Date: 20190103
  Transmission Date: 20190417
  Serious: Yes (Other)
  Sender: FDA-Public Use
  Company Number: JP-OTSUKA-2018_039111

PATIENT
  Age: 46 Year
  Sex: Female

DRUGS (3)
  1. PROPOFOL. [Concomitant]
     Active Substance: PROPOFOL
     Indication: PRODUCT USED FOR UNKNOWN INDICATION
     Dosage: 4ML, QD
     Route: 042
     Dates: start: 20181127, end: 20181127
  2. MIDAZOLAM [Concomitant]
     Active Substance: MIDAZOLAM HYDROCHLORIDE
     Indication: PRODUCT USED FOR UNKNOWN INDICATION
     Dosage: 2MG, QD
     Route: 042
     Dates: start: 20181127, end: 20181127
  3. LEPETAN 0.2 MG INJECTION [Suspect]
     Active Substance: BUPRENORPHINE HYDROCHLORIDE
     Indication: SEDATIVE THERAPY
     Dosage: 0.1 MG, QD
     Route: 042
     Dates: start: 20181127, end: 20181127

REACTIONS (4)
  - Product use in unapproved indication [Recovered/Resolved]
  - Delayed recovery from anaesthesia [Recovered/Resolved]
  - Nausea [Recovered/Resolved]
  - Vomiting [Recovered/Resolved]

NARRATIVE: CASE EVENT DATE: 20181127
